FAERS Safety Report 14156132 (Version 2)
Quarter: 2017Q4

REPORT INFORMATION
  Report Type: Report from Study
  Country: BR (occurrence: BR)
  Receive Date: 20171103
  Receipt Date: 20171130
  Transmission Date: 20180321
  Serious: Yes (Other)
  Sender: FDA-Public Use
  Company Number: PHHY2017BR159800

PATIENT
  Sex: Female
  Weight: 103 kg

DRUGS (4)
  1. LUMIGAN [Concomitant]
     Active Substance: BIMATOPROST
     Indication: GLAUCOMA
     Dosage: 1 DF, QD
     Route: 031
  2. GLAUB [Concomitant]
     Active Substance: BRIMONIDINE TARTRATE
     Indication: GLAUCOMA
     Dosage: 0.1 MG, BID
     Route: 031
  3. TRAVATAN [Suspect]
     Active Substance: TRAVOPROST
     Indication: GLAUCOMA
     Dosage: 1 DF, QD
     Route: 031
  4. AZORGA [Concomitant]
     Active Substance: BRINZOLAMIDE\TIMOLOL MALEATE
     Indication: GLAUCOMA
     Dosage: 10 MG, BID
     Route: 031

REACTIONS (7)
  - Blindness unilateral [Not Recovered/Not Resolved]
  - Intraocular pressure increased [Unknown]
  - Hypertension [Recovering/Resolving]
  - Visual impairment [Not Recovered/Not Resolved]
  - Rheumatic disorder [Recovering/Resolving]
  - Urea urine abnormal [Recovering/Resolving]
  - Vision blurred [Not Recovered/Not Resolved]
